FAERS Safety Report 16475932 (Version 10)
Quarter: 2020Q2

REPORT INFORMATION
  Report Type: Report from Study
  Country: MY (occurrence: MY)
  Receive Date: 20190625
  Receipt Date: 20200404
  Transmission Date: 20200713
  Serious: Yes (Death, Hospitalization, Other)
  Sender: FDA-Public Use
  Company Number: PHHY2019MY023141

PATIENT
  Age: 63 Year
  Sex: Male

DRUGS (13)
  1. VOTRIENT [Suspect]
     Active Substance: PAZOPANIB HYDROCHLORIDE
     Dosage: UNK
     Route: 048
     Dates: start: 20190117, end: 20190227
  2. FRUSEMIDE [Concomitant]
     Active Substance: FUROSEMIDE
     Indication: SCROTAL OEDEMA
     Dosage: 40 OT
     Route: 042
     Dates: start: 20190130, end: 20190204
  3. VOTRIENT [Suspect]
     Active Substance: PAZOPANIB HYDROCHLORIDE
     Indication: METASTATIC RENAL CELL CARCINOMA
     Dosage: 400 MG, UNK
     Route: 048
     Dates: start: 20180222, end: 20181121
  4. AMLODIPINE [Concomitant]
     Active Substance: AMLODIPINE BESYLATE
     Indication: HYPERTENSION
     Dosage: 10 MG, QD
     Route: 065
  5. HYDROCORTISON [Concomitant]
     Active Substance: HYDROCORTISONE
     Indication: PRURITUS
     Dosage: 1 %
     Route: 061
     Dates: start: 20190117, end: 20190202
  6. MORPHINE [Concomitant]
     Active Substance: MORPHINE
     Dosage: 5 OT
     Route: 058
     Dates: start: 20190202, end: 20190204
  7. VOTRIENT [Suspect]
     Active Substance: PAZOPANIB HYDROCHLORIDE
     Dosage: UNK
     Route: 048
     Dates: start: 20190228, end: 20190228
  8. CEFUROXIME. [Concomitant]
     Active Substance: CEFUROXIME
     Indication: PRODUCT USED FOR UNKNOWN INDICATION
     Dosage: 750 OT
     Route: 065
     Dates: start: 20190131, end: 20190204
  9. DAONIL [Concomitant]
     Active Substance: GLYBURIDE
     Indication: DIABETES MELLITUS
     Dosage: 5 MG, QD
     Route: 065
  10. MORPHINE [Concomitant]
     Active Substance: MORPHINE
     Indication: SCROTAL PAIN
     Dosage: 10 UNK
     Route: 065
     Dates: start: 20190130, end: 20190204
  11. FRUSEMIDE [Concomitant]
     Active Substance: FUROSEMIDE
     Dosage: 40 UNK
     Route: 048
     Dates: start: 20190205, end: 20190209
  12. VOTRIENT [Suspect]
     Active Substance: PAZOPANIB HYDROCHLORIDE
     Dosage: 600 MG, UNK
     Route: 048
     Dates: start: 20181122, end: 20190116
  13. METFORMIN [Concomitant]
     Active Substance: METFORMIN HYDROCHLORIDE
     Indication: DIABETES MELLITUS
     Dosage: 1 G, BID
     Route: 065

REACTIONS (24)
  - Proteinuria [Recovering/Resolving]
  - Musculoskeletal pain [Recovered/Resolved]
  - Decreased appetite [Fatal]
  - Hyperkalaemia [Recovered/Resolved]
  - General physical health deterioration [Fatal]
  - Hyponatraemia [Recovered/Resolved]
  - Hypoalbuminaemia [Not Recovered/Not Resolved]
  - Constipation [Not Recovered/Not Resolved]
  - Anaemia [Not Recovered/Not Resolved]
  - Abdominal distension [Not Recovered/Not Resolved]
  - Hyperkalaemia [Recovered/Resolved]
  - Malignant neoplasm progression [Fatal]
  - Respiratory arrest [Fatal]
  - Oedema peripheral [Not Recovered/Not Resolved]
  - Fluid overload [Not Recovered/Not Resolved]
  - Dyspnoea [Fatal]
  - Hyperkalaemia [Recovered/Resolved]
  - Lethargy [Fatal]
  - Metastatic renal cell carcinoma [Fatal]
  - Cardiac arrest [Fatal]
  - Hypoalbuminaemia [Not Recovered/Not Resolved]
  - Hyperkalaemia [Recovered/Resolved]
  - Chest pain [Recovered/Resolved]
  - Testicular pain [Recovering/Resolving]

NARRATIVE: CASE EVENT DATE: 20180308
